FAERS Safety Report 13664522 (Version 1)
Quarter: 2017Q2

REPORT INFORMATION
  Report Type: Spontaneous
  Country: US (occurrence: US)
  Receive Date: 20170617
  Receipt Date: 20170617
  Transmission Date: 20170830
  Serious: No
  Sender: FDA-Public Use
  Company Number: None

PATIENT
  Age: 53 Year
  Sex: Female

DRUGS (3)
  1. SPRYCEL [Suspect]
     Active Substance: DASATINIB
  2. GLEEVEC [Suspect]
     Active Substance: IMATINIB MESYLATE
  3. TASIGNA [Suspect]
     Active Substance: NILOTINIB

REACTIONS (4)
  - Gait disturbance [None]
  - Pleurisy [None]
  - Pain [None]
  - Arthritis [None]

NARRATIVE: CASE EVENT DATE: 20170617
